FAERS Safety Report 4477091-5 (Version None)
Quarter: 2004Q4

REPORT INFORMATION
  Report Type: 
  Country: None (occurrence: None)
  Receive Date: 20041018
  Receipt Date: 20041005
  Transmission Date: 20050328
  Serious: Yes (Other)
  Sender: FDA-Public Use
  Company Number: 200417646US

PATIENT
  Sex: 0

DRUGS (2)
  1. TELITHROMYCIN [Suspect]
     Dosage: DOSE: NOT PROVIDED
  2. ANTIARRHYTHMIC AGENTS [Concomitant]
     Dosage: DOSE: NOT PROVIDED

REACTIONS (1)
  - CARDIO-RESPIRATORY ARREST [None]
